FAERS Safety Report 7058058-X (Version None)
Quarter: 2010Q4

REPORT INFORMATION
  Report Type: 
  Country: None (occurrence: None)
  Receive Date: 20101021
  Receipt Date: 20101021
  Transmission Date: 20110411
  Serious: Yes (Hospitalization)
  Sender: FDA-Public Use
  Company Number: None

PATIENT
  Age: 46 Year
  Sex: Female
  Weight: 58.9676 kg

DRUGS (1)
  1. TRANSDERM SCOP [Suspect]
     Dosage: 1 PATCH OVER THREE DAYS TRANSDERMAL
     Route: 062
     Dates: start: 20101015, end: 20101018

REACTIONS (6)
  - BLOOD PRESSURE DECREASED [None]
  - DEHYDRATION [None]
  - DIZZINESS POSTURAL [None]
  - HYPOVENTILATION [None]
  - LETHARGY [None]
  - NAUSEA [None]
